FAERS Safety Report 5302184-X (Version None)
Quarter: 2007Q2

REPORT INFORMATION
  Report Type: 
  Country: None (occurrence: None)
  Receive Date: 20070419
  Receipt Date: 20070418
  Transmission Date: 20071010
  Serious: Yes (Hospitalization)
  Sender: FDA-Public Use
  Company Number: GBWYE418811APR07

PATIENT
  Age: 8 Week
  Sex: Male

DRUGS (2)
  1. IBUPROFEN [Suspect]
     Indication: VIRAEMIA
     Route: 048
  2. PARACETAMOL [Concomitant]

REACTIONS (3)
  - DRUG ADMINISTRATION ERROR [None]
  - RENAL PAPILLARY NECROSIS [None]
  - URETERIC OBSTRUCTION [None]
